FAERS Safety Report 12458161 (Version 1)
Quarter: 2016Q2

REPORT INFORMATION
  Report Type: Spontaneous
  Country: US (occurrence: US)
  Receive Date: 20160613
  Receipt Date: 20160613
  Transmission Date: 20160815
  Serious: No
  Sender: FDA-Public Use
  Company Number: US-TEVA-652270USA

PATIENT
  Sex: Female

DRUGS (1)
  1. DULOXETINE. [Suspect]
     Active Substance: DULOXETINE
     Indication: FIBROMYALGIA
     Dosage: 30 MILLIGRAM DAILY;
     Route: 065

REACTIONS (5)
  - Weight increased [Unknown]
  - Nausea [Unknown]
  - Fatigue [Unknown]
  - Drug ineffective [Unknown]
  - Headache [Unknown]
